FAERS Safety Report 17375131 (Version 5)
Quarter: 2020Q2

REPORT INFORMATION
  Report Type: Report from Study
  Country: CO (occurrence: CO)
  Receive Date: 20200205
  Receipt Date: 20200511
  Transmission Date: 20200713
  Serious: Yes (Life-Threatening, Other)
  Sender: FDA-Public Use
  Company Number: PHHY2018CO127601

PATIENT
  Sex: Female
  Weight: 65 kg

DRUGS (8)
  1. REVOLADE [Suspect]
     Active Substance: ELTROMBOPAG
     Dosage: 50 MG, QD (TABLET OF 25 MG) (APPROXIMATELY 3 YEARS AGO)
     Route: 048
     Dates: end: 20200121
  2. ACETAMINOFEN [Concomitant]
     Active Substance: ACETAMINOPHEN
     Indication: HEADACHE
     Dosage: 500 MG, QD (PRN)
     Route: 048
  3. REVOLADE [Suspect]
     Active Substance: ELTROMBOPAG
     Dosage: 75 MG, QD
     Route: 048
  4. REVOLADE [Suspect]
     Active Substance: ELTROMBOPAG
     Dosage: 75 MG, QD (TABLET OF 25 MG)
     Route: 048
     Dates: start: 20200121
  5. REVOLADE [Suspect]
     Active Substance: ELTROMBOPAG
     Dosage: 50 MG, QD
     Route: 048
  6. ACETAMINOFEN [Concomitant]
     Active Substance: ACETAMINOPHEN
     Indication: PAIN
  7. REVOLADE [Suspect]
     Active Substance: ELTROMBOPAG
     Indication: IMMUNE THROMBOCYTOPENIA
     Dosage: 50 MG, QD
     Route: 048
  8. REVOLADE [Suspect]
     Active Substance: ELTROMBOPAG
     Dosage: 100 MG (2 X 50 MG)
     Route: 048

REACTIONS (10)
  - Cough [Recovering/Resolving]
  - Lacrimation increased [Unknown]
  - Facial paralysis [Unknown]
  - Asphyxia [Recovering/Resolving]
  - Product use issue [Unknown]
  - Platelet count decreased [Unknown]
  - Blepharospasm [Not Recovered/Not Resolved]
  - Stress [Unknown]
  - Paralysis [Unknown]
  - Lip disorder [Unknown]
